FAERS Safety Report 16738421 (Version 2)
Quarter: 2020Q1

REPORT INFORMATION
  Report Type: Report from Study
  Country: None (occurrence: AR)
  Receive Date: 20190825
  Receipt Date: 20200224
  Transmission Date: 20200409
  Serious: Yes (Hospitalization, Other)
  Sender: FDA-Public Use
  Company Number: AR-ABBVIE-19K-007-2799870-00

PATIENT
  Age: 55 Year
  Sex: Female

DRUGS (2)
  1. HUMIRA [Suspect]
     Active Substance: ADALIMUMAB
     Indication: RHEUMATOID ARTHRITIS
     Dosage: FREQUENCY CHANGED
     Route: 058
     Dates: start: 20150124
  2. HUMIRA [Suspect]
     Active Substance: ADALIMUMAB
     Route: 058

REACTIONS (13)
  - Depression [Not Recovered/Not Resolved]
  - Pneumonia [Recovering/Resolving]
  - Unevaluable event [Unknown]
  - Platelet count decreased [Recovered/Resolved]
  - Diabetes mellitus [Recovered/Resolved]
  - Weight decreased [Not Recovered/Not Resolved]
  - Arthralgia [Unknown]
  - Bronchospasm [Recovering/Resolving]
  - Blood glucose fluctuation [Not Recovered/Not Resolved]
  - Catarrh [Unknown]
  - Bronchitis [Not Recovered/Not Resolved]
  - Blood albumin decreased [Not Recovered/Not Resolved]
  - Pain in extremity [Not Recovered/Not Resolved]

NARRATIVE: CASE EVENT DATE: 2018
